FAERS Safety Report 14304121 (Version 1)
Quarter: 2017Q4

REPORT INFORMATION
  Report Type: Spontaneous
  Country: JP (occurrence: JP)
  Receive Date: 20171219
  Receipt Date: 20171219
  Transmission Date: 20180321
  Serious: Yes (Hospitalization, Other)
  Sender: FDA-Public Use
  Company Number: JP-OTSUKA-JP-2012-16015

PATIENT
  Age: 60 Year
  Sex: Female
  Weight: 47 kg

DRUGS (3)
  1. ABILIFY [Suspect]
     Active Substance: ARIPIPRAZOLE
     Indication: MANIA
     Dosage: 24 MG, QD
     Route: 048
     Dates: start: 20120619, end: 20120625
  2. AMLODIPINE [Concomitant]
     Active Substance: AMLODIPINE BESYLATE
     Indication: HYPERTENSION
     Dosage: 5 MG, QD
     Route: 048
     Dates: start: 20080620, end: 20120707
  3. LIMAS [Concomitant]
     Active Substance: LITHIUM CARBONATE
     Indication: BIPOLAR I DISORDER
     Dosage: 700 MG, QD
     Route: 048
     Dates: start: 20080528, end: 20120707

REACTIONS (9)
  - Bradykinesia [Unknown]
  - Tremor [Unknown]
  - Pyrexia [Unknown]
  - Dysphagia [Unknown]
  - Stupor [Unknown]
  - Blood creatine phosphokinase increased [Recovered/Resolved]
  - Hyperhidrosis [Unknown]
  - Muscle rigidity [Unknown]
  - Somnolence [Unknown]

NARRATIVE: CASE EVENT DATE: 20120622
